FAERS Safety Report 8197112-6 (Version None)
Quarter: 2012Q1

REPORT INFORMATION
  Report Type: 
  Country: None (occurrence: None)
  Receive Date: 20120307
  Receipt Date: 20120221
  Transmission Date: 20120608
  Serious: Yes (Life-Threatening, Hospitalization)
  Sender: FDA-Public Use
  Company Number: SAN_00043_2012

PATIENT
  Age: 62 Year
  Sex: Male

DRUGS (1)
  1. METFORMIN HYDROCHLORIDE [Suspect]
     Indication: DIABETES MELLITUS
     Dosage: (1000 MG BID)

REACTIONS (12)
  - NAUSEA [None]
  - DIARRHOEA [None]
  - BLOOD PRESSURE INCREASED [None]
  - ANION GAP INCREASED [None]
  - HYPOTHERMIA [None]
  - RESPIRATORY RATE INCREASED [None]
  - HYPERTENSION [None]
  - HEART RATE INCREASED [None]
  - LACTIC ACIDOSIS [None]
  - HYPOGLYCAEMIA [None]
  - ABDOMINAL PAIN [None]
  - METABOLIC ACIDOSIS [None]
